FAERS Safety Report 12928341 (Version 1)
Quarter: 2016Q4

REPORT INFORMATION
  Report Type: Report from Study
  Country: US (occurrence: US)
  Receive Date: 20161110
  Receipt Date: 20161110
  Transmission Date: 20170207
  Serious: Yes (Other)
  Sender: FDA-Public Use
  Company Number: US-BRISTOL-MYERS SQUIBB COMPANY-BMS-2016-088935

PATIENT
  Age: 68 Year
  Sex: Male

DRUGS (1)
  1. NIVOLUMAB [Suspect]
     Active Substance: NIVOLUMAB
     Indication: LUNG NEOPLASM MALIGNANT
     Dosage: UNK UNK, Q2WK
     Route: 042
     Dates: start: 20160122

REACTIONS (12)
  - Sinus headache [Not Recovered/Not Resolved]
  - Pain [Unknown]
  - Cough [Unknown]
  - Nasopharyngitis [Unknown]
  - Vascular operation [Unknown]
  - Dry skin [Unknown]
  - Abnormal faeces [Unknown]
  - Weight increased [Unknown]
  - Fatigue [Recovering/Resolving]
  - Constipation [Recovered/Resolved]
  - Mouth ulceration [Unknown]
  - Malignant neoplasm progression [Unknown]

NARRATIVE: CASE EVENT DATE: 20160222
